FAERS Safety Report 9189737 (Version 1)
Quarter: 2013Q1

REPORT INFORMATION
  Report Type: Spontaneous
  Country: US (occurrence: US)
  Receive Date: 20130326
  Receipt Date: 20130326
  Transmission Date: 20140127
  Serious: Yes (Hospitalization, Other)
  Sender: FDA-Public Use
  Company Number: US-PFIZER INC-2013094400

PATIENT
  Sex: Female
  Weight: 51.7 kg

DRUGS (4)
  1. EFFEXOR XR [Suspect]
     Indication: DEPRESSION
     Dosage: 150 MG DAILY
     Dates: end: 201204
  2. EFFEXOR XR [Suspect]
     Indication: ANXIETY
  3. PRISTIQ [Suspect]
     Indication: ANXIETY
     Dosage: 40 MG DAILY
  4. PRISTIQ [Suspect]
     Dosage: 40 MG DAILY
     Dates: start: 201302

REACTIONS (9)
  - Diarrhoea [Unknown]
  - Weight decreased [Unknown]
  - Constipation [Recovered/Resolved]
  - Fatigue [Unknown]
  - Restless legs syndrome [Recovered/Resolved]
  - Pain in extremity [Recovered/Resolved]
  - Musculoskeletal stiffness [Recovered/Resolved]
  - Malaise [Unknown]
  - Anxiety [Unknown]
